FAERS Safety Report 4791830-5 (Version None)
Quarter: 2005Q4

REPORT INFORMATION
  Report Type: 
  Country: None (occurrence: None)
  Receive Date: 20051007
  Receipt Date: 20050928
  Transmission Date: 20060501
  Serious: Yes (Death)
  Sender: FDA-Public Use
  Company Number: KR-JNJFOC-20050906769

PATIENT
  Sex: Male
  Weight: 64 kg

DRUGS (4)
  1. REMINYL [Suspect]
     Route: 048
  2. REMINYL [Suspect]
     Indication: DEMENTIA ALZHEIMER'S TYPE
     Route: 048
  3. GLUCOBAY [Concomitant]
     Indication: DIABETES MELLITUS
     Route: 048
     Dates: start: 20040413, end: 20050304
  4. GLIMEPID [Concomitant]
     Indication: DIABETES MELLITUS
     Route: 048
     Dates: start: 20040413, end: 20050304

REACTIONS (5)
  - CONDITION AGGRAVATED [None]
  - DECUBITUS ULCER [None]
  - DEHYDRATION [None]
  - SEPSIS [None]
  - VOMITING [None]
